FAERS Safety Report 19872184 (Version 1)
Quarter: 2021Q3

REPORT INFORMATION
  Report Type: Spontaneous
  Country: US (occurrence: US)
  Receive Date: 20210921
  Receipt Date: 20210921
  Transmission Date: 20211014
  Serious: No
  Sender: FDA-Public Use
  Company Number: None

PATIENT
  Age: 59 Year
  Sex: Female

DRUGS (1)
  1. MYCOPHENOLATE MOFETIL. [Suspect]
     Active Substance: MYCOPHENOLATE MOFETIL
     Indication: MYASTHENIA GRAVIS
     Dosage: 3 TS QAM TO 2 TS QPM BID ORALLY
     Route: 048
     Dates: start: 20210108

REACTIONS (7)
  - Generalised anxiety disorder [None]
  - Gastric disorder [None]
  - Bladder operation [None]
  - Glaucoma [None]
  - Major depression [None]
  - Myasthenia gravis [None]
  - Sleep apnoea syndrome [None]

NARRATIVE: CASE EVENT DATE: 20210913
